FAERS Safety Report 11172576 (Version 1)
Quarter: 2015Q2

REPORT INFORMATION
  Report Type: Spontaneous
  Country: US (occurrence: US)
  Receive Date: 20150608
  Receipt Date: 20150608
  Transmission Date: 20150821
  Serious: No
  Sender: FDA-Public Use
  Company Number: US-AMGEN-USASP2015010666

PATIENT
  Age: 92 Year
  Sex: Female

DRUGS (3)
  1. PROCRIT [Suspect]
     Active Substance: ERYTHROPOIETIN
     Indication: PRODUCT USED FOR UNKNOWN INDICATION
     Dosage: 50,000 UNK, MONTHLY
     Route: 058
     Dates: start: 201305
  2. PROCRIT [Suspect]
     Active Substance: ERYTHROPOIETIN
     Dosage: 50,000 UNK, MONTHLY
     Route: 058
     Dates: start: 201305
  3. POTASSIUM [Concomitant]
     Active Substance: POTASSIUM
     Dosage: UNK, UNK, DAILY
     Route: 048

REACTIONS (1)
  - Incorrect dose administered [Unknown]
